APPROVED DRUG PRODUCT: E-MYCIN
Active Ingredient: ERYTHROMYCIN
Strength: 333MG
Dosage Form/Route: TABLET, DELAYED RELEASE;ORAL
Application: A060272 | Product #002
Applicant: ARBOR PHARMACEUTICALS INC
Approved: Approved Prior to Jan 1, 1982 | RLD: No | RS: No | Type: DISCN